FAERS Safety Report 4905943-8 (Version None)
Quarter: 2006Q1

REPORT INFORMATION
  Report Type: 
  Country: None (occurrence: None)
  Receive Date: 20060206
  Receipt Date: 20060127
  Transmission Date: 20060701
  Serious: Yes (Other)
  Sender: FDA-Public Use
  Company Number: 2006013605

PATIENT
  Weight: 9.0719 kg

DRUGS (1)
  1. INFANT'S PEDIACARE DECONGESTANT AND COUGH DROPS (PSEUDOEPHEDRINE, DEXT [Suspect]
     Indication: NASAL CONGESTION
     Dosage: 0.4 ML EVERY 6  HOURS, ORAL
     Route: 048
     Dates: start: 20051201, end: 20051201

REACTIONS (5)
  - ABNORMAL BEHAVIOUR [None]
  - HALLUCINATION [None]
  - INSOMNIA [None]
  - PSYCHOMOTOR HYPERACTIVITY [None]
  - SCREAMING [None]
